APPROVED DRUG PRODUCT: CROMOLYN SODIUM
Active Ingredient: CROMOLYN SODIUM
Strength: 4%
Dosage Form/Route: SOLUTION/DROPS;OPHTHALMIC
Application: A074706 | Product #001
Applicant: SCIEGEN PHARMACEUTICALS INC
Approved: Apr 29, 1998 | RLD: No | RS: No | Type: DISCN